FAERS Safety Report 9755613 (Version 1)
Quarter: 2013Q4

REPORT INFORMATION
  Report Type: Spontaneous
  Country: US (occurrence: US)
  Receive Date: 20131213
  Receipt Date: 20131213
  Transmission Date: 20140711
  Serious: No
  Sender: FDA-Public Use
  Company Number: US-GLAXOSMITHKLINE-A1021107A

PATIENT
  Age: 43 Year
  Sex: Male

DRUGS (2)
  1. NICODERM CQ 21MG [Suspect]
     Indication: EX-TOBACCO USER
     Dates: end: 20130423
  2. NICODERM CQ 14MG [Suspect]
     Indication: EX-TOBACCO USER
     Dates: end: 20130423

REACTIONS (6)
  - Malaise [Not Recovered/Not Resolved]
  - Nausea [Not Recovered/Not Resolved]
  - Dizziness [Recovered/Resolved]
  - Overdose [Not Recovered/Not Resolved]
  - Vomiting [Recovered/Resolved]
  - Feeling abnormal [Unknown]
